FAERS Safety Report 16855845 (Version 1)
Quarter: 2019Q3

REPORT INFORMATION
  Report Type: Spontaneous
  Country: FR (occurrence: FR)
  Receive Date: 20190926
  Receipt Date: 20190926
  Transmission Date: 20191005
  Serious: Yes (Hospitalization)
  Sender: FDA-Public Use
  Company Number: FR-ROCHE-2420952

PATIENT
  Age: 64 Year
  Sex: Male
  Weight: 60 kg

DRUGS (18)
  1. BICNU [Suspect]
     Active Substance: CARMUSTINE
     Indication: DIFFUSE LARGE B-CELL LYMPHOMA
     Dosage: IN MAY/2014 MOST RECENT DOSE
     Route: 041
     Dates: start: 2013
  2. FUROSEMIDE. [Concomitant]
     Active Substance: FUROSEMIDE
  3. XARELTO [Concomitant]
     Active Substance: RIVAROXABAN
  4. ETOPOSIDE. [Suspect]
     Active Substance: ETOPOSIDE
     Indication: DIFFUSE LARGE B-CELL LYMPHOMA
     Dosage: IN 2014, HE RECEIVED MOST RECENT DOSE
     Route: 041
     Dates: start: 201010
  5. BISOPROLOL FUMARATE. [Concomitant]
     Active Substance: BISOPROLOL FUMARATE
  6. PANTOPRAZOLE [Concomitant]
     Active Substance: PANTOPRAZOLE
  7. CARBOPLATINE [Suspect]
     Active Substance: CARBOPLATIN
     Indication: DIFFUSE LARGE B-CELL LYMPHOMA
     Dosage: IN /MAY/2014, HE RECEIVED MOST RECENT DOSE
     Route: 041
     Dates: start: 2013
  8. CYCLOPHOSPHAMIDE. [Suspect]
     Active Substance: CYCLOPHOSPHAMIDE
     Indication: DIFFUSE LARGE B-CELL LYMPHOMA
     Dosage: /JUN/2016, HE RECEIVED MOST RECENT DOSE
     Route: 041
     Dates: start: 201010
  9. CYTARABINE. [Suspect]
     Active Substance: CYTARABINE
     Indication: DIFFUSE LARGE B-CELL LYMPHOMA
     Dosage: IN 2014, HE RECEIVED MOST RECENT DOSE
     Route: 041
     Dates: start: 201010
  10. RITUXIMAB. [Suspect]
     Active Substance: RITUXIMAB
     Indication: MARGINAL ZONE LYMPHOMA
     Dosage: IN //2016, MOST RECENT DOSE
     Route: 041
     Dates: start: 2009
  11. DOXORUBICINE [DOXORUBICIN] [Suspect]
     Active Substance: DOXORUBICIN
     Indication: DIFFUSE LARGE B-CELL LYMPHOMA
     Dosage: IN JUN/2016, HE RECEIVED MOST RECENT DOSE
     Route: 041
     Dates: start: 201010
  12. ALKERAN [Suspect]
     Active Substance: MELPHALAN
     Indication: DIFFUSE LARGE B-CELL LYMPHOMA
     Dosage: IN MAY/2014, HE RECEIVED MOST RECENT DOSE
     Route: 041
     Dates: start: 2013
  13. HOLOXAN [Suspect]
     Active Substance: IFOSFAMIDE
     Indication: DIFFUSE LARGE B-CELL LYMPHOMA
     Route: 041
     Dates: start: 201010, end: 2013
  14. VINCRISTINE SULFATE. [Suspect]
     Active Substance: VINCRISTINE SULFATE
     Indication: DIFFUSE LARGE B-CELL LYMPHOMA
     Route: 041
     Dates: start: 201010, end: 201606
  15. CHLORAMINOPHENE [Suspect]
     Active Substance: CHLORAMBUCIL
     Indication: MARGINAL ZONE LYMPHOMA
     Dosage: IN OCT/2010, HE RECEIVED MOST RECENT DOSE
     Route: 048
     Dates: start: 2009
  16. PREDNISONE. [Concomitant]
     Active Substance: PREDNISONE
  17. PARACETAMOL [Concomitant]
     Active Substance: ACETAMINOPHEN
  18. METHOTREXATE. [Suspect]
     Active Substance: METHOTREXATE
     Indication: DIFFUSE LARGE B-CELL LYMPHOMA
     Route: 041
     Dates: start: 201010

REACTIONS (1)
  - Pulmonary arterial hypertension [Not Recovered/Not Resolved]

NARRATIVE: CASE EVENT DATE: 20190716
